FAERS Safety Report 9449259 (Version 1)
Quarter: 2013Q3

REPORT INFORMATION
  Report Type: Spontaneous
  Country: DK (occurrence: DK)
  Receive Date: 20130808
  Receipt Date: 20130808
  Transmission Date: 20140515
  Serious: Yes (Hospitalization)
  Sender: FDA-Public Use
  Company Number: DK-GLAXOSMITHKLINE-B0830306A

PATIENT
  Age: 73 Year
  Sex: Male

DRUGS (2)
  1. ZINACEF [Suspect]
     Indication: CONDITION AGGRAVATED
     Route: 065
     Dates: start: 20110312
  2. SOLU-MEDROL [Concomitant]
     Route: 042
     Dates: start: 20110312

REACTIONS (11)
  - Cardiac arrest [Recovered/Resolved]
  - Anaphylactic shock [Recovered/Resolved]
  - Depressed level of consciousness [Recovered/Resolved]
  - Cardiac massage [Recovered/Resolved]
  - Respiratory therapy [Recovered/Resolved]
  - Respiratory arrest [Recovered/Resolved]
  - Urticaria [Recovered/Resolved]
  - Muscle spasms [Recovered/Resolved]
  - Cyanosis [Recovered/Resolved]
  - Eyelid oedema [Recovered/Resolved]
  - Pharyngeal oedema [Recovered/Resolved]
